FAERS Safety Report 8335053-1 (Version None)
Quarter: 2012Q2

REPORT INFORMATION
  Report Type: 
  Country: None (occurrence: None)
  Receive Date: 20120503
  Receipt Date: 20100419
  Transmission Date: 20120825
  Serious: No
  Sender: FDA-Public Use
  Company Number: US-TEVA-2010002280

PATIENT
  Sex: Male
  Weight: 88.53 kg

DRUGS (8)
  1. NUVIGIL [Suspect]
     Dosage: 150 MILLIGRAM;
     Route: 048
  2. NUVIGIL [Suspect]
     Dosage: 250 MILLIGRAM;
     Route: 048
  3. ZOCOR [Concomitant]
     Dosage: 10 MILLIGRAM;
  4. NUVIGIL [Suspect]
     Indication: COGNITIVE DISORDER
     Dosage: 100 MILLIGRAM;
     Route: 048
     Dates: start: 20100203, end: 20100212
  5. NUVIGIL [Suspect]
     Indication: SLEEP APNOEA SYNDROME
     Dosage: 50 MILLIGRAM;
     Route: 048
     Dates: start: 20100122, end: 20100302
  6. NUVIGIL [Suspect]
     Dosage: 75 MILLIGRAM;
     Route: 048
     Dates: start: 20100213
  7. COZAAR [Concomitant]
     Indication: HYPERTENSION
     Dosage: 25 MILLIGRAM;
  8. NAMENDA [Concomitant]
     Dosage: 20 MILLIGRAM;

REACTIONS (2)
  - DRUG INEFFECTIVE [None]
  - BLOOD PRESSURE INCREASED [None]
